FAERS Safety Report 8321916-X (Version None)
Quarter: 2012Q2

REPORT INFORMATION
  Report Type: 
  Country: None (occurrence: None)
  Receive Date: 20120430
  Receipt Date: 20120424
  Transmission Date: 20120825
  Serious: Yes (Hospitalization, Other)
  Sender: FDA-Public Use
  Company Number: CH-PFIZER INC-2012100888

PATIENT
  Age: 81 Year
  Sex: Female

DRUGS (13)
  1. EFFEXOR XR [Suspect]
     Indication: DEPRESSION
     Dosage: UNK
     Dates: start: 20040101, end: 20110801
  2. METHOTREXATE SODIUM [Concomitant]
     Dosage: 15 MG, WEEKLY
     Route: 058
  3. TORSEMIDE [Concomitant]
     Dosage: 5 MG, 1X/DAY
     Route: 048
  4. LITHIUM SULFATE [Suspect]
     Indication: DEPRESSION
     Dosage: 660 MG, 1X/DAY
     Dates: start: 20040101, end: 20110801
  5. LITHIUM SULFATE [Suspect]
     Dosage: 330 MG, 1X/DAY
     Dates: start: 20110801, end: 20110101
  6. METOPROLOL TARTRATE AND HYDROCHLOROTHIAZIDE [Concomitant]
     Dosage: 25 MG, 1X/DAY
     Route: 048
  7. NEXIUM [Concomitant]
     Dosage: 20 MG, 1X/DAY
     Route: 048
  8. EFFEXOR XR [Suspect]
     Dosage: 75 MG, 1X/DAY
     Route: 048
     Dates: start: 20110101, end: 20120215
  9. ACETAMINOPHEN [Concomitant]
     Dosage: 1 G, 4X/DAY
  10. PREDNISONE [Concomitant]
     Dosage: 10 MG, 1X/DAY
     Route: 048
  11. LITHIUM SULFATE [Suspect]
     Dosage: 660 MG, 1X/DAY
     Dates: start: 20110101, end: 20120215
  12. DILZEM-RR [Concomitant]
     Dosage: 60 MG, 2X/DAY
     Route: 048
  13. SINTROM [Concomitant]
     Dosage: 1 MG, 1X/DAY
     Route: 048

REACTIONS (10)
  - RENAL FAILURE ACUTE [None]
  - NAUSEA [None]
  - HYPERCALCAEMIA [None]
  - MYOCLONUS [None]
  - DRUG LEVEL INCREASED [None]
  - DEHYDRATION [None]
  - EXTRAPYRAMIDAL DISORDER [None]
  - TREMOR [None]
  - WEIGHT DECREASED [None]
  - ASTHENIA [None]
